FAERS Safety Report 7080380-1 (Version None)
Quarter: 2010Q4

REPORT INFORMATION
  Report Type: 
  Country: None (occurrence: None)
  Receive Date: 20101103
  Receipt Date: 20100115
  Transmission Date: 20110411
  Serious: Yes (Other)
  Sender: FDA-Public Use
  Company Number: US-ASTRAZENECA-2009SE14790

PATIENT
  Age: 540 Month
  Sex: Female
  Weight: 87.1 kg

DRUGS (8)
  1. SEROQUEL [Suspect]
     Indication: BIPOLAR DISORDER
     Dosage: 100-400 MG
     Route: 048
     Dates: start: 20050101, end: 20080101
  2. SEROQUEL [Suspect]
     Route: 048
     Dates: start: 20100104
  3. RISPERDAL [Concomitant]
     Dates: start: 20050101
  4. EFFEXOR [Concomitant]
  5. AMBIENT [Concomitant]
  6. LITHOBID [Concomitant]
  7. PROZAC [Concomitant]
     Dates: start: 20050101
  8. BUSPAR [Concomitant]

REACTIONS (6)
  - BLOOD CHOLESTEROL INCREASED [None]
  - DIABETES MELLITUS [None]
  - DIABETIC NEUROPATHY [None]
  - HYPERGLYCAEMIA [None]
  - HYPERLIPIDAEMIA [None]
  - PAIN [None]
